FAERS Safety Report 7608632-4 (Version None)
Quarter: 2011Q3

REPORT INFORMATION
  Report Type: 
  Country: None (occurrence: None)
  Receive Date: 20110713
  Receipt Date: 20110713
  Transmission Date: 20111222
  Serious: Yes (Life-Threatening, Hospitalization, Disabling)
  Sender: FDA-Public Use
  Company Number: None

PATIENT
  Sex: Male
  Weight: 74.8 kg

DRUGS (11)
  1. SYNTHROID [Concomitant]
  2. PREDNISONE [Concomitant]
  3. CEFEPIME [Concomitant]
  4. CIPROFLOXACIN [Suspect]
  5. ABELCET [Suspect]
     Indication: MENINGITIS CRYPTOCOCCAL
     Dosage: 350MG DAILY IV
     Route: 042
     Dates: start: 20110702, end: 20110703
  6. DOUNEB [Concomitant]
  7. PROTONIX [Concomitant]
  8. ASPIRIN [Concomitant]
  9. KEPPRA [Concomitant]
  10. POTASSIUM CHLORIDE [Concomitant]
  11. VANCOMYCIN [Concomitant]

REACTIONS (8)
  - INFUSION RELATED REACTION [None]
  - TACHYCARDIA [None]
  - DYSPNOEA [None]
  - BODY TEMPERATURE INCREASED [None]
  - TREMOR [None]
  - CONFUSIONAL STATE [None]
  - CONVULSION [None]
  - HYPERTENSION [None]
